FAERS Safety Report 5414843-9 (Version None)
Quarter: 2007Q3

REPORT INFORMATION
  Report Type: 
  Country: None (occurrence: None)
  Receive Date: 20070815
  Receipt Date: 20070803
  Transmission Date: 20080115
  Serious: Yes (Other)
  Sender: FDA-Public Use
  Company Number: PHEH2007US07628

PATIENT
  Age: 50 Year
  Sex: Female
  Weight: 58.956 kg

DRUGS (2)
  1. ZELNORM [Suspect]
     Indication: IRRITABLE BOWEL SYNDROME
     Dosage: 6 MG, BID
     Route: 048
     Dates: start: 20050301, end: 20070301
  2. NEXIUM [Concomitant]

REACTIONS (12)
  - ABDOMINAL PAIN [None]
  - ARTERIOSCLEROSIS CORONARY ARTERY [None]
  - CATHETERISATION CARDIAC ABNORMAL [None]
  - CHEST DISCOMFORT [None]
  - CHEST PAIN [None]
  - DYSPNOEA [None]
  - EJECTION FRACTION DECREASED [None]
  - ELECTROCARDIOGRAM ST SEGMENT DEPRESSION [None]
  - ISCHAEMIA [None]
  - NAUSEA [None]
  - VENOUS OCCLUSION [None]
  - VOMITING [None]
